FAERS Safety Report 8535585-7 (Version None)
Quarter: 2012Q2

REPORT INFORMATION
  Report Type: 
  Country: None (occurrence: None)
  Receive Date: 20120412
  Receipt Date: 20100323
  Transmission Date: 20120825
  Serious: Yes (Other)
  Sender: FDA-Public Use
  Company Number: PHHY2010US14507

PATIENT
  Sex: Female

DRUGS (4)
  1. DEPAKOTE ER [Concomitant]
  2. SYNTHROID [Concomitant]
  3. CLOZAPINE [Suspect]
     Indication: SCHIZOAFFECTIVE DISORDER
     Dosage: 200 MG, QHS, ORAL
     Route: 048
     Dates: end: 20100101
  4. SEROQUEL [Concomitant]

REACTIONS (2)
  - WHITE BLOOD CELL COUNT DECREASED [None]
  - NEUTROPHIL COUNT DECREASED [None]
